FAERS Safety Report 4790964-9 (Version None)
Quarter: 2005Q4

REPORT INFORMATION
  Report Type: 
  Country: None (occurrence: None)
  Receive Date: 20051005
  Receipt Date: 20050927
  Transmission Date: 20060501
  Serious: Yes (Hospitalization, Disabling, Other)
  Sender: FDA-Public Use
  Company Number: 2005116642

PATIENT
  Age: 53 Year
  Sex: Male
  Weight: 103.8737 kg

DRUGS (6)
  1. BEXTRA [Suspect]
     Indication: INFLAMMATION
     Dosage: 20 MG (20 MG, 1 IN 1 D)
     Dates: start: 20030601
  2. CELEBREX [Suspect]
     Indication: INFLAMMATION
     Dosage: (2 IN 1 D)
     Dates: start: 20050401
  3. WARFARIN SODIUM [Concomitant]
  4. DIGOXIN [Concomitant]
  5. COREG [Concomitant]
  6. COZAAR [Concomitant]

REACTIONS (13)
  - ABASIA [None]
  - ARTHRITIS INFECTIVE [None]
  - ARTHROPATHY [None]
  - ASTHENIA [None]
  - DRUG INEFFECTIVE [None]
  - FALL [None]
  - IMPAIRED WORK ABILITY [None]
  - JOINT RANGE OF MOTION DECREASED [None]
  - JOINT SWELLING [None]
  - MOVEMENT DISORDER [None]
  - SCAR [None]
  - STAPHYLOCOCCAL INFECTION [None]
  - WRIST FRACTURE [None]
